FAERS Safety Report 12416859 (Version 4)
Quarter: 2016Q3

REPORT INFORMATION
  Report Type: Spontaneous
  Country: US (occurrence: US)
  Receive Date: 20160530
  Receipt Date: 20160929
  Transmission Date: 20161109
  Serious: Yes (Hospitalization, Other)
  Sender: FDA-Public Use
  Company Number: US-PFIZER INC-2016279660

PATIENT
  Age: 64 Year
  Sex: Female
  Weight: 66 kg

DRUGS (7)
  1. PROPRANOLOL HCL [Concomitant]
     Active Substance: PROPRANOLOL HYDROCHLORIDE
     Dosage: 10 MG, DAILY
     Route: 048
     Dates: start: 20160518, end: 20160601
  2. EXEMESTANE. [Suspect]
     Active Substance: EXEMESTANE
     Indication: BREAST CANCER
     Dosage: 25 MG, 1X/DAY
     Route: 048
     Dates: start: 2011
  3. EXEMESTANE. [Suspect]
     Active Substance: EXEMESTANE
     Indication: BREAST CANCER
     Dosage: 25 MG, 1X/DAY
     Route: 048
     Dates: start: 2011
  4. EXEMESTANE. [Suspect]
     Active Substance: EXEMESTANE
     Dosage: 25 MG, DAILY
     Route: 048
     Dates: start: 20120423, end: 20160516
  5. ASPIRIN 81 [Concomitant]
     Active Substance: ASPIRIN
     Dosage: 81 MG, DAILY
     Route: 048
     Dates: start: 201605
  6. VITAMIN D3 [Concomitant]
     Active Substance: CHOLECALCIFEROL
     Dosage: 3000 IU, DAILY
     Route: 048
     Dates: start: 201105
  7. EXEMESTANE. [Suspect]
     Active Substance: EXEMESTANE
     Dosage: 25 MG, DAILY
     Route: 048
     Dates: start: 20120423, end: 20160516

REACTIONS (28)
  - Blindness [Unknown]
  - Hypoaesthesia [Unknown]
  - Paraesthesia [Unknown]
  - Eye pain [Unknown]
  - Visual impairment [Not Recovered/Not Resolved]
  - Ischaemic stroke [Not Recovered/Not Resolved]
  - Transient ischaemic attack [Unknown]
  - Pain [Recovered/Resolved]
  - Disturbance in attention [Unknown]
  - Depression [Recovered/Resolved]
  - Myalgia [Unknown]
  - Nasal congestion [Unknown]
  - Photophobia [Unknown]
  - Muscular weakness [Recovered/Resolved]
  - Visual field defect [Unknown]
  - Dry eye [Unknown]
  - Diplopia [Unknown]
  - Insomnia [Unknown]
  - Lymphadenopathy [Unknown]
  - Vision blurred [Not Recovered/Not Resolved]
  - Fatigue [Recovered/Resolved]
  - Dizziness [Unknown]
  - Scar [Unknown]
  - Deafness [Unknown]
  - Cataract [Unknown]
  - Anxiety [Unknown]
  - Balance disorder [Recovered/Resolved]
  - Tearfulness [Unknown]

NARRATIVE: CASE EVENT DATE: 201604
